FAERS Safety Report 4737915-0 (Version None)
Quarter: 2005Q3

REPORT INFORMATION
  Report Type: 
  Country: None (occurrence: None)
  Receive Date: 20050808
  Receipt Date: 20050808
  Transmission Date: 20060218
  Serious: Yes (Other)
  Sender: FDA-Public Use
  Company Number: None

PATIENT
  Age: 62 Year
  Sex: Female

DRUGS (1)
  1. NOVOLOG [Suspect]
     Indication: DIABETES MELLITUS INSULIN-DEPENDENT
     Dosage: 140 UNITS DAY WITH INSULIN PUMP, INTRAMUSCULARLY, ALSO
     Route: 030
     Dates: start: 20050801, end: 20050804

REACTIONS (2)
  - BLOOD GLUCOSE INCREASED [None]
  - NO THERAPEUTIC RESPONSE [None]
